FAERS Safety Report 23383025 (Version 1)
Quarter: 2024Q1

REPORT INFORMATION
  Report Type: Spontaneous
  Country: CN (occurrence: CN)
  Receive Date: 20240109
  Receipt Date: 20240109
  Transmission Date: 20240409
  Serious: Yes (Other)
  Sender: FDA-Public Use
  Company Number: CN-009507513-2401CHN003310

PATIENT
  Age: 74 Year
  Sex: Female

DRUGS (2)
  1. CILASTATIN SODIUM\IMIPENEM [Suspect]
     Active Substance: CILASTATIN SODIUM\IMIPENEM
     Indication: Azotaemia
     Dosage: 0.5 G, BID, IV DRIP, START DATE ALSO REPORTED AS 19-DEC-2023
     Route: 041
     Dates: start: 20231219, end: 20231224
  2. CILASTATIN SODIUM\IMIPENEM [Suspect]
     Active Substance: CILASTATIN SODIUM\IMIPENEM
     Indication: Pneumonia

REACTIONS (4)
  - Delirium [Recovering/Resolving]
  - Depressed level of consciousness [Recovered/Resolved]
  - Tremor [Recovering/Resolving]
  - Product use in unapproved indication [Unknown]

NARRATIVE: CASE EVENT DATE: 20231219
